FAERS Safety Report 21740693 (Version 1)
Quarter: 2022Q4

REPORT INFORMATION
  Report Type: Spontaneous
  Country: US (occurrence: None)
  Receive Date: 20221215
  Receipt Date: 20221215
  Transmission Date: 20230113
  Serious: Yes (Hospitalization)
  Sender: FDA-Public Use
  Company Number: None

PATIENT
  Age: 38 Year
  Sex: Male

DRUGS (2)
  1. PANTOPRAZOLE [Suspect]
     Active Substance: PANTOPRAZOLE
     Indication: Gastrointestinal disorder prophylaxis
     Dosage: FREQUENCY : TWICE A DAY;?
     Route: 042
     Dates: start: 20210622, end: 20220803
  2. PANTOPRAZOLE [Suspect]
     Active Substance: PANTOPRAZOLE
     Dosage: FREQUENCY : TWICE A DAY;?
     Route: 048
     Dates: start: 20220915, end: 20220916

REACTIONS (3)
  - Drug reaction with eosinophilia and systemic symptoms [None]
  - Eosinophil count increased [None]
  - Liver function test increased [None]

NARRATIVE: CASE EVENT DATE: 20220916
